FAERS Safety Report 9691315 (Version 2)
Quarter: 2014Q1

REPORT INFORMATION
  Report Type: Spontaneous
  Country: FR (occurrence: FR)
  Receive Date: 20131115
  Receipt Date: 20140305
  Transmission Date: 20141002
  Serious: Yes (Other)
  Sender: FDA-Public Use
  Company Number: FR-BIOMARINAP-FR-2013-101906

PATIENT
  Age: 8 Year
  Sex: Male

DRUGS (2)
  1. ALDURAZYME [Suspect]
     Indication: MUCOPOLYSACCHARIDOSIS I
     Dosage: UNK, QW
     Route: 042
  2. AERIUS                             /01398501/ [Concomitant]
     Indication: PRODUCT USED FOR UNKNOWN INDICATION

REACTIONS (7)
  - Infusion related reaction [Unknown]
  - Tachypnoea [Unknown]
  - Dyspnoea [Unknown]
  - Rash [Unknown]
  - Livedo reticularis [Unknown]
  - Chills [Unknown]
  - Hypertension [Unknown]
